FAERS Safety Report 7084632-0 (Version None)
Quarter: 2010Q4

REPORT INFORMATION
  Report Type: 
  Country: None (occurrence: None)
  Receive Date: 20101104
  Receipt Date: 20101027
  Transmission Date: 20110411
  Serious: Yes (Life-Threatening, Hospitalization, Other)
  Sender: FDA-Public Use
  Company Number: PHHY2010NL71805

PATIENT
  Sex: Male

DRUGS (9)
  1. S-OIV FOCETRIA 7.5AG 100% MF59 V-V111-A+INJ [Suspect]
     Route: 064
     Dates: start: 20091111, end: 20091111
  2. S-OIV FOCETRIA 7.5AG 100% MF59 V-V111-A+INJ [Suspect]
     Route: 064
     Dates: start: 20091209, end: 20091209
  3. SYNTOCINON [Suspect]
     Route: 064
  4. FOLIC ACID [Concomitant]
     Dosage: 0.4 MG DAILY
     Route: 064
     Dates: start: 20090301
  5. TAMIFLU [Concomitant]
     Dosage: UNK
     Route: 064
     Dates: start: 20091120
  6. TAMIFLU [Concomitant]
     Dosage: UNK
     Route: 064
     Dates: start: 20091201
  7. PARACETAMOL [Concomitant]
     Dosage: UNK
     Route: 064
     Dates: start: 20091101
  8. OXYTOCIN [Concomitant]
     Route: 064
  9. PETHIDINE [Concomitant]
     Route: 064

REACTIONS (4)
  - DRUG EXPOSURE DURING PREGNANCY [None]
  - FOETAL DISORDER [None]
  - HYPOGLYCAEMIA [None]
  - MACROSOMIA [None]
